FAERS Safety Report 21779675 (Version 1)
Quarter: 2022Q4

REPORT INFORMATION
  Report Type: Report from Study
  Country: IN (occurrence: IN)
  Receive Date: 20221226
  Receipt Date: 20221226
  Transmission Date: 20230113
  Serious: Yes (Other)
  Sender: FDA-Public Use
  Company Number: IN-002147023-NVSC2021IN290547

PATIENT
  Age: 48 Year
  Sex: Female

DRUGS (3)
  1. RIBOCICLIB [Suspect]
     Active Substance: RIBOCICLIB
     Indication: Breast cancer
     Dosage: 600 MG, QD
     Route: 065
     Dates: start: 20200930, end: 20201205
  2. RIBOCICLIB [Suspect]
     Active Substance: RIBOCICLIB
     Indication: Primary myelofibrosis
     Dosage: 400 MG, QD
     Route: 065
     Dates: start: 20201208, end: 20210302
  3. RIBOCICLIB [Suspect]
     Active Substance: RIBOCICLIB
     Dosage: 200 MG, QD
     Route: 065
     Dates: start: 20210330

REACTIONS (4)
  - Neutropenia [Unknown]
  - Rash [Unknown]
  - Blood bilirubin increased [Unknown]
  - Blood bilirubin abnormal [Unknown]

NARRATIVE: CASE EVENT DATE: 20201103
